FAERS Safety Report 16186882 (Version 1)
Quarter: 2019Q2

REPORT INFORMATION
  Report Type: Spontaneous
  Country: IT (occurrence: GB)
  Receive Date: 20190411
  Receipt Date: 20190411
  Transmission Date: 20190711
  Serious: Yes (Other)
  Sender: FDA-Public Use
  Company Number: IT-SUNOVION-2019SUN001440

PATIENT

DRUGS (13)
  1. TESTOSTERONE. [Concomitant]
     Active Substance: TESTOSTERONE
  2. LEVOTHYROXINE SODIUM. [Concomitant]
     Active Substance: LEVOTHYROXINE SODIUM
  3. SIMVASTATIN. [Concomitant]
     Active Substance: SIMVASTATIN
  4. DIAZEPAM. [Concomitant]
     Active Substance: DIAZEPAM
  5. GABAPENTIN. [Concomitant]
     Active Substance: GABAPENTIN
  6. VITAMINS NOS [Concomitant]
     Active Substance: VITAMINS
  7. THIAMINE. [Concomitant]
     Active Substance: THIAMINE
  8. LANSOPRAZOLE. [Concomitant]
     Active Substance: LANSOPRAZOLE
  9. SILDENAFIL. [Concomitant]
     Active Substance: SILDENAFIL
  10. ACETYLSALICYLIC ACID [Concomitant]
     Active Substance: ASPIRIN
  11. LATUDA [Suspect]
     Active Substance: LURASIDONE HYDROCHLORIDE
     Indication: AFFECTIVE DISORDER
     Route: 048
  12. MOMETASONE [Concomitant]
     Active Substance: MOMETASONE
  13. CO-DYDRAMOL [Concomitant]
     Active Substance: ACETAMINOPHEN\DIHYDROCODEINE

REACTIONS (2)
  - Jaundice [Recovering/Resolving]
  - Off label use [Recovered/Resolved]
